FAERS Safety Report 8950846 (Version 1)
Quarter: 2012Q4

REPORT INFORMATION
  Report Type: Spontaneous
  Country: US (occurrence: None)
  Receive Date: 20121130
  Receipt Date: 20121130
  Transmission Date: 20130627
  Serious: Yes (Hospitalization)
  Sender: FDA-Public Use
  Company Number: None

PATIENT
  Age: 54 Year
  Sex: Male
  Weight: 81.65 kg

DRUGS (2)
  1. ASPIRIN [Suspect]
  2. IBUPROFEN [Suspect]

REACTIONS (2)
  - Transient ischaemic attack [None]
  - Inhibitory drug interaction [None]
